FAERS Safety Report 19798608 (Version 1)
Quarter: 2021Q3

REPORT INFORMATION
  Report Type: Spontaneous
  Country: ES (occurrence: ES)
  Receive Date: 20210907
  Receipt Date: 20210907
  Transmission Date: 20211014
  Serious: Yes (Hospitalization)
  Sender: FDA-Public Use
  Company Number: ES-TEVA-2021-ES-1948963

PATIENT
  Age: 33 Year
  Sex: Female

DRUGS (3)
  1. ROBAXISAL COMPUESTO 380 MG /300 MG COMPRIMIDOS , 50 COMPRIMIDOS [Suspect]
     Active Substance: ACETAMINOPHEN\METHOCARBAMOL
     Indication: TOOTHACHE
     Dosage: 3 DOSAGE FORMS DAILY; 1?1?1
     Route: 048
     Dates: start: 20200421, end: 20200422
  2. IBUPROFENO (1769A) [Suspect]
     Active Substance: IBUPROFEN
     Indication: TOOTHACHE
     Dosage: 3 DOSAGE FORMS DAILY; 1?1?1
     Route: 048
     Dates: start: 20200401, end: 20200404
  3. AMOXICILINA (108A) [Suspect]
     Active Substance: AMOXICILLIN
     Indication: TOOTH INFECTION
     Dosage: 3 DOSAGE FORMS DAILY; 1?1?1
     Route: 048
     Dates: start: 20200303, end: 20200310

REACTIONS (1)
  - Hepatic failure [Recovered/Resolved]

NARRATIVE: CASE EVENT DATE: 20200426
